FAERS Safety Report 7465184-X (Version None)
Quarter: 2011Q2

REPORT INFORMATION
  Report Type: 
  Country: None (occurrence: None)
  Receive Date: 20110428
  Receipt Date: 20110413
  Transmission Date: 20111010
  Serious: Yes (Hospitalization, Disabling, Other)
  Sender: FDA-Public Use
  Company Number: AUR-APL-2011-01288

PATIENT
  Age: 62 Year
  Sex: Female

DRUGS (1)
  1. ALENDRONATE SODIUM [Suspect]
     Indication: OSTEOPOROSIS
     Dosage: 70MG-WEEKLY
     Dates: start: 20030101

REACTIONS (7)
  - BLOOD CALCIUM INCREASED [None]
  - OROANTRAL FISTULA [None]
  - NASAL OBSTRUCTION [None]
  - NASAL POLYPS [None]
  - OSTEONECROSIS [None]
  - LYMPHADENOPATHY [None]
  - DENTAL CARIES [None]
